FAERS Safety Report 6398158-0 (Version None)
Quarter: 2009Q3

REPORT INFORMATION
  Report Type: 
  Country: None (occurrence: None)
  Receive Date: 20090923
  Receipt Date: 19980226
  Transmission Date: 20100115
  Serious: Yes (Death, Other)
  Sender: FDA-Public Use
  Company Number: WSDF_00059

PATIENT
  Sex: Male

DRUGS (1)
  1. WINRHO [Suspect]
     Dosage: (120 ?G QD)
     Dates: start: 19830211, end: 19830211

REACTIONS (2)
  - HEPATITIS C POSITIVE [None]
  - HIV TEST POSITIVE [None]
